FAERS Safety Report 16007074 (Version 1)
Quarter: 2019Q1

REPORT INFORMATION
  Report Type: Spontaneous
  Country: US (occurrence: US)
  Receive Date: 20190226
  Receipt Date: 20190226
  Transmission Date: 20190418
  Serious: Yes (Other)
  Sender: FDA-Public Use
  Company Number: PHEH2019US008483

PATIENT
  Sex: Male

DRUGS (1)
  1. TASIGNA [Suspect]
     Active Substance: NILOTINIB
     Indication: CHRONIC MYELOID LEUKAEMIA
     Dosage: 02 DF, BID
     Route: 048

REACTIONS (20)
  - Hypogammaglobulinaemia [Unknown]
  - Hypertension [Unknown]
  - Spinal pain [Recovered/Resolved]
  - Depression [Unknown]
  - Fatigue [Unknown]
  - Pericardial effusion [Unknown]
  - Diabetes mellitus [Unknown]
  - Asthma [Recovered/Resolved]
  - Dyspnoea [Unknown]
  - Atrial fibrillation [Recovered/Resolved]
  - Transient ischaemic attack [Unknown]
  - Chest pain [Unknown]
  - Carotid artery stenosis [Unknown]
  - Chronic obstructive pulmonary disease [Unknown]
  - Coronary artery disease [Unknown]
  - Gastrooesophageal reflux disease [Unknown]
  - Atrial tachycardia [Recovered/Resolved]
  - Sleep apnoea syndrome [Unknown]
  - Pulmonary embolism [Unknown]
  - Ischaemic cardiomyopathy [Unknown]
